FAERS Safety Report 15660243 (Version 1)
Quarter: 2018Q4

REPORT INFORMATION
  Report Type: Spontaneous
  Country: US (occurrence: US)
  Receive Date: 20181127
  Receipt Date: 20181127
  Transmission Date: 20190205
  Serious: No
  Sender: FDA-Public Use
  Company Number: US-SCIEGEN PHARMACEUTICALS INC-2018SCISPO00684

PATIENT

DRUGS (1)
  1. METAXALONE. [Suspect]
     Active Substance: METAXALONE
     Indication: BACK DISORDER
     Dosage: UNK
     Route: 065

REACTIONS (3)
  - Product odour abnormal [Unknown]
  - Abnormal dreams [Unknown]
  - Bradyphrenia [Unknown]
